FAERS Safety Report 12246039 (Version 1)
Quarter: 2016Q2

REPORT INFORMATION
  Report Type: Spontaneous
  Country: FR (occurrence: FR)
  Receive Date: 20160407
  Receipt Date: 20160407
  Transmission Date: 20160815
  Serious: Yes (Other)
  Sender: FDA-Public Use
  Company Number: FR-FRESENIUS KABI-FK201601681

PATIENT
  Age: 67 Year
  Sex: Female

DRUGS (1)
  1. PACLITAXEL 6MG/ML CONCENTRATE FOR SOLUTION FOR INFUSION [Suspect]
     Active Substance: PACLITAXEL
     Indication: BREAST CANCER
     Route: 042
     Dates: start: 20141201, end: 20141201

REACTIONS (6)
  - Feeling hot [Recovered/Resolved]
  - Erythema [Recovered/Resolved]
  - Drug administration error [Recovered/Resolved]
  - Administration site extravasation [Recovered/Resolved]
  - Burning sensation [Recovered/Resolved]
  - Injection site plaque [Recovered/Resolved]

NARRATIVE: CASE EVENT DATE: 20141201
